FAERS Safety Report 22314095 (Version 1)
Quarter: 2023Q2

REPORT INFORMATION
  Report Type: Spontaneous
  Country: VN (occurrence: VN)
  Receive Date: 20230512
  Receipt Date: 20230512
  Transmission Date: 20230721
  Serious: Yes (Other)
  Sender: FDA-Public Use
  Company Number: VN-GUERBET / HYPHENS-VN-20230003

PATIENT
  Age: 76 Year
  Sex: Male

DRUGS (4)
  1. LIPIODOL [Suspect]
     Active Substance: ETHIODIZED OIL
     Indication: Transcatheter arterial chemoembolisation
     Dosage: LIPIODOL IN MIXTURE WITH DOXORUBICIN, MITOMYCIN, AND CISPLATIN.
     Route: 013
  2. DOXORUBICIN [Suspect]
     Active Substance: DOXORUBICIN
     Indication: Transcatheter arterial chemoembolisation
     Dosage: LIPIODOL IN MIXTURE WITH DOXORUBICIN, MITOMYCIN, AND CISPLATIN.
     Route: 013
  3. MITOMYCIN [Suspect]
     Active Substance: MITOMYCIN
     Indication: Transcatheter arterial chemoembolisation
     Dosage: LIPIODOL IN MIXTURE WITH DOXORUBICIN, MITOMYCIN, AND CISPLATIN.
     Route: 013
  4. CISPLATIN [Suspect]
     Active Substance: CISPLATIN
     Indication: Transcatheter arterial chemoembolisation
     Dosage: LIPIODOL IN MIXTURE WITH DOXORUBICIN, MITOMYCIN, AND CISPLATIN.
     Route: 013

REACTIONS (3)
  - Paraplegia [Unknown]
  - Vasculitis [Unknown]
  - Spinal cord ischaemia [Unknown]
